FAERS Safety Report 5368349-6 (Version None)
Quarter: 2007Q2

REPORT INFORMATION
  Report Type: 
  Country: None (occurrence: None)
  Receive Date: 20070625
  Receipt Date: 20060925
  Transmission Date: 20071010
  Serious: Yes (Hospitalization)
  Sender: FDA-Public Use
  Company Number: DE-ROCHE-460277

PATIENT
  Age: 48 Year
  Sex: Female
  Weight: 72 kg

DRUGS (8)
  1. CAPECITABINE [Suspect]
     Indication: BREAST CANCER METASTATIC
     Dosage: FREQUENCY REPORTED AS TWO WEEKS Q THREE WEEKS.
     Route: 048
     Dates: start: 20060817
  2. TAXOL [Suspect]
     Indication: BREAST CANCER METASTATIC
     Route: 042
     Dates: start: 20060816, end: 20060906
  3. EPIRUBICIN [Suspect]
     Indication: BREAST CANCER METASTATIC
     Route: 042
     Dates: start: 20060614, end: 20060802
  4. ARANESP [Suspect]
     Route: 058
     Dates: start: 20060614
  5. CYCLOPHOSPHAMIDE [Suspect]
     Indication: BREAST CANCER METASTATIC
     Route: 042
     Dates: start: 20060614, end: 20060802
  6. INNOHEP [Concomitant]
     Route: 058
  7. BROMAZANIL [Concomitant]
     Route: 048
  8. 1 CONCOMITANT DRUG [Concomitant]
     Dosage: REPORTED AS 'OMETAB'. FREQUENCY REPORTED AS 'IF NEEDED'.
     Route: 048
     Dates: start: 20060101

REACTIONS (1)
  - HYPERSENSITIVITY [None]
